FAERS Safety Report 6437040-7 (Version None)
Quarter: 2009Q4

REPORT INFORMATION
  Report Type: 
  Country: None (occurrence: None)
  Receive Date: 20091112
  Receipt Date: 20091102
  Transmission Date: 20100525
  Serious: No
  Sender: FDA-Public Use
  Company Number: US-JNJFOC-20091007950

PATIENT
  Sex: Female
  Weight: 47.17 kg

DRUGS (2)
  1. DURAGESIC-100 [Suspect]
     Indication: PAIN
     Dosage: 100 UG/HR 2 PATCHES
     Route: 062
     Dates: start: 20091022
  2. ACTIQ [Concomitant]
     Indication: PAIN
     Route: 002

REACTIONS (3)
  - DRUG INEFFECTIVE [None]
  - INAPPROPRIATE SCHEDULE OF DRUG ADMINISTRATION [None]
  - PRODUCT QUALITY ISSUE [None]
